FAERS Safety Report 5140150-8 (Version None)
Quarter: 2006Q4

REPORT INFORMATION
  Report Type: 
  Country: None (occurrence: None)
  Receive Date: 20061025
  Receipt Date: 20061025
  Transmission Date: 20070319
  Serious: Yes (Other)
  Sender: FDA-Public Use
  Company Number: None

PATIENT
  Age: 65 Year
  Sex: Male
  Weight: 101.6 kg

DRUGS (4)
  1. TRAMADOL HCL [Suspect]
  2. LORATADINE / PSEUDOEPHED [Concomitant]
  3. NAPROXEN [Concomitant]
  4. OMEPRAZOLE [Concomitant]

REACTIONS (1)
  - HEADACHE [None]
